FAERS Safety Report 6666059-6 (Version None)
Quarter: 2010Q2

REPORT INFORMATION
  Report Type: 
  Country: None (occurrence: None)
  Receive Date: 20100402
  Receipt Date: 20100326
  Transmission Date: 20101027
  Serious: Yes (Hospitalization)
  Sender: FDA-Public Use
  Company Number: B0644842A

PATIENT
  Sex: Male
  Weight: 81 kg

DRUGS (2)
  1. PAZOPANIB [Suspect]
     Indication: NEOPLASM
     Route: 048
     Dates: start: 20100310
  2. IFOSFAMIDE [Suspect]
     Indication: NEOPLASM
     Route: 051
     Dates: start: 20100316

REACTIONS (2)
  - FEBRILE NEUTROPENIA [None]
  - PRODUCTIVE COUGH [None]
